FAERS Safety Report 7459881-X (Version None)
Quarter: 2011Q2

REPORT INFORMATION
  Report Type: 
  Country: None (occurrence: None)
  Receive Date: 20110505
  Receipt Date: 20110427
  Transmission Date: 20111010
  Serious: Yes (Hospitalization)
  Sender: FDA-Public Use
  Company Number: FR-PFIZER INC-2011090610

PATIENT
  Age: 50 Year
  Sex: Male

DRUGS (6)
  1. ACETAMINOPHEN [Suspect]
     Dosage: UNK
     Route: 048
     Dates: start: 20110225, end: 20110303
  2. EFFEXOR XR [Interacting]
     Dosage: 75 MG, 2X/DAY
     Route: 048
     Dates: start: 20110225
  3. IMODIUM [Suspect]
     Dosage: UNK
     Route: 048
     Dates: start: 20110225, end: 20110303
  4. REYATAZ [Interacting]
     Dosage: 300 MG, 1X/DAY
     Route: 048
     Dates: start: 20101218, end: 20110303
  5. NORVIR [Interacting]
     Dosage: 100 MG, 1X/DAY
     Route: 048
     Dates: start: 20101218, end: 20110303
  6. TRUVADA [Concomitant]
     Dosage: UNK
     Route: 048
     Dates: start: 20070101, end: 20110303

REACTIONS (6)
  - DIARRHOEA [None]
  - CONDITION AGGRAVATED [None]
  - HYPERBILIRUBINAEMIA [None]
  - DRUG INTERACTION [None]
  - ABDOMINAL PAIN [None]
  - VOMITING [None]
